FAERS Safety Report 10924986 (Version 2)
Quarter: 2015Q2

REPORT INFORMATION
  Report Type: Spontaneous
  Country: US (occurrence: US)
  Receive Date: 20150318
  Receipt Date: 20150524
  Transmission Date: 20150821
  Serious: No
  Sender: FDA-Public Use
  Company Number: US-JNJFOC-20110904047

PATIENT
  Age: 71 Year
  Sex: Male
  Weight: 72.58 kg

DRUGS (15)
  1. CRESTOR [Concomitant]
     Active Substance: ROSUVASTATIN CALCIUM
     Indication: BLOOD CHOLESTEROL INCREASED
     Route: 065
  2. VITAMINS NOS [Concomitant]
     Active Substance: VITAMINS
     Indication: VITAMIN SUPPLEMENTATION
     Route: 065
  3. NEXIUM [Concomitant]
     Active Substance: ESOMEPRAZOLE MAGNESIUM
     Indication: GASTRIC DISORDER
     Route: 065
  4. AMLODIPINE BESYLATE. [Concomitant]
     Active Substance: AMLODIPINE BESYLATE
     Indication: BLOOD PRESSURE
     Route: 048
  5. VITAMIN C [Concomitant]
     Active Substance: ASCORBIC ACID
     Indication: VITAMIN SUPPLEMENTATION
     Route: 048
  6. VERAMYST NOS [Concomitant]
     Route: 065
  7. GENTAMICIN SULFATE. [Concomitant]
     Active Substance: GENTAMICIN SULFATE
     Route: 061
  8. SIMCOR [Concomitant]
     Active Substance: NIACIN\SIMVASTATIN
     Route: 048
  9. NEXIUM [Concomitant]
     Active Substance: ESOMEPRAZOLE MAGNESIUM
     Route: 048
  10. CIALIS [Concomitant]
     Active Substance: TADALAFIL
     Route: 048
  11. NIZORAL A-D [Suspect]
     Active Substance: KETOCONAZOLE
     Indication: PRURITUS
     Route: 061
     Dates: start: 201007
  12. ASPIRIN. [Concomitant]
     Active Substance: ASPIRIN
     Indication: PROPHYLAXIS
     Route: 048
  13. ZADITOR NOS [Concomitant]
     Route: 065
  14. NIZORAL A-D [Suspect]
     Active Substance: KETOCONAZOLE
     Indication: DANDRUFF
     Route: 061
     Dates: start: 201007
  15. GEMFIBROZIL. [Concomitant]
     Active Substance: GEMFIBROZIL
     Route: 048

REACTIONS (8)
  - Lacrimation increased [Unknown]
  - Headache [Recovered/Resolved]
  - Eye pain [Unknown]
  - Inappropriate schedule of drug administration [Unknown]
  - Vertigo positional [Recovered/Resolved]
  - Pruritus [Unknown]
  - Dizziness [Recovered/Resolved]
  - Nausea [Unknown]

NARRATIVE: CASE EVENT DATE: 20100728
